FAERS Safety Report 24010095 (Version 1)
Quarter: 2024Q2

REPORT INFORMATION
  Report Type: Spontaneous
  Country: CA (occurrence: CA)
  Receive Date: 20240625
  Receipt Date: 20240625
  Transmission Date: 20240715
  Serious: Yes (Other)
  Sender: FDA-Public Use
  Company Number: CA-VIIV HEALTHCARE LIMITED-CA2023AMR093323

PATIENT
  Age: 65 Year
  Sex: Male

DRUGS (2)
  1. RILPIVIRINE [Suspect]
     Active Substance: RILPIVIRINE
     Indication: HIV infection
     Dosage: UNK UNK, Q2M, (600MG/ 3ML CABOTEGRAVIR AND 900MG/ 3ML RILPIVIRINE)
     Route: 030
     Dates: start: 20201130
  2. CABOTEGRAVIR [Suspect]
     Active Substance: CABOTEGRAVIR
     Indication: HIV infection
     Dosage: UNK UNK, Q2M, (600MG/ 3ML CABOTEGRAVIR AND 900MG/ 3ML RILPIVIRINE)
     Route: 030
     Dates: start: 20201130

REACTIONS (2)
  - Knee arthroplasty [Unknown]
  - Spinal disorder [Not Recovered/Not Resolved]
